FAERS Safety Report 14167601 (Version 2)
Quarter: 2018Q1

REPORT INFORMATION
  Report Type: Spontaneous
  Country: US (occurrence: US)
  Receive Date: 20171107
  Receipt Date: 20180213
  Transmission Date: 20180508
  Serious: No
  Sender: FDA-Public Use
  Company Number: US-MYLANLABS-2017M1069737

PATIENT
  Age: 84 Year
  Sex: Female
  Weight: 57 kg

DRUGS (2)
  1. LIDOCAINE PATCH [Suspect]
     Active Substance: LIDOCAINE
     Indication: PAIN
     Dosage: 1 DF (1 PATCH FOR 12 HOURS AS NEEDED ONLY WITHIN A 24-HOUR PERIOD)
     Route: 061
     Dates: start: 20171003
  2. PREDNISONE. [Suspect]
     Active Substance: PREDNISONE
     Indication: ARTHRITIS
     Dosage: 10 MG, QD

REACTIONS (3)
  - Weight increased [Unknown]
  - Product quality issue [Not Recovered/Not Resolved]
  - Product adhesion issue [Not Recovered/Not Resolved]

NARRATIVE: CASE EVENT DATE: 20171003
